FAERS Safety Report 24633760 (Version 1)
Quarter: 2024Q4

REPORT INFORMATION
  Report Type: Other
  Country: BG (occurrence: BG)
  Receive Date: 20241118
  Receipt Date: 20241118
  Transmission Date: 20250115
  Serious: Yes (Life-Threatening, Hospitalization, Congenital Anomaly)
  Sender: MERCK KGAA
  Company Number: BG-Merck Healthcare KGaA-2024060053

PATIENT
  Sex: Female
  Weight: 4 kg

DRUGS (1)
  1. LEVOTHYROXINE [Suspect]
     Active Substance: LEVOTHYROXINE
     Indication: Thyroiditis
     Dosage: PRODUCT TAKEN BY PATIENT^S MOTHER
     Route: 064

REACTIONS (3)
  - VACTERL syndrome [Unknown]
  - Pulmonary aplasia [Unknown]
  - Foetal exposure during pregnancy [Recovered/Resolved]
